FAERS Safety Report 13565214 (Version 1)
Quarter: 2017Q2

REPORT INFORMATION
  Report Type: Spontaneous
  Country: GB (occurrence: GB)
  Receive Date: 20170519
  Receipt Date: 20170519
  Transmission Date: 20170830
  Serious: Yes (Other)
  Sender: FDA-Public Use
  Company Number: GB-MYLANLABS-2017M1029895

PATIENT

DRUGS (12)
  1. DONEPEZIL. [Concomitant]
     Active Substance: DONEPEZIL
     Dosage: UNK
  2. WARFARIN [Concomitant]
     Active Substance: WARFARIN
     Dosage: UNK
  3. BISOPROLOL [Concomitant]
     Active Substance: BISOPROLOL
     Dosage: UNK
  4. RISPERIDONE. [Suspect]
     Active Substance: RISPERIDONE
     Dosage: 0.5 MG, BID
     Route: 048
     Dates: start: 20170330, end: 20170425
  5. RISPERIDONE. [Suspect]
     Active Substance: RISPERIDONE
     Indication: AGGRESSION
     Dosage: 0.5 MG, QD
     Route: 048
  6. ALLOPURINOL. [Concomitant]
     Active Substance: ALLOPURINOL
     Dosage: UNK
  7. CANDESARTAN. [Concomitant]
     Active Substance: CANDESARTAN
     Dosage: UNK
  8. LORAZEPAM. [Concomitant]
     Active Substance: LORAZEPAM
     Dosage: UNK
  9. LACTULOSE. [Concomitant]
     Active Substance: LACTULOSE
     Dosage: UNK
  10. MELATONIN [Concomitant]
     Active Substance: MELATONIN
     Dosage: UNK
  11. MIRTAZAPINE. [Concomitant]
     Active Substance: MIRTAZAPINE
     Dosage: UNK
  12. ROSUVASTATIN. [Concomitant]
     Active Substance: ROSUVASTATIN
     Dosage: UNK

REACTIONS (1)
  - Pleurothotonus [Recovered/Resolved]

NARRATIVE: CASE EVENT DATE: 20170417
